FAERS Safety Report 25519606 (Version 3)
Quarter: 2025Q3

REPORT INFORMATION
  Report Type: Report from Study
  Country: US (occurrence: US)
  Receive Date: 20250704
  Receipt Date: 20250711
  Transmission Date: 20251020
  Serious: Yes (Other)
  Sender: ABBVIE
  Company Number: US-ABBVIE-6158296

PATIENT
  Age: 68 Year
  Sex: Female
  Weight: 102.05 kg

DRUGS (6)
  1. HUMIRA [Suspect]
     Active Substance: ADALIMUMAB
     Indication: Rheumatoid arthritis
     Route: 058
  2. HUMIRA [Suspect]
     Active Substance: ADALIMUMAB
     Dosage: CITRATE FREE
     Route: 058
     Dates: start: 202409
  3. FOLIC ACID [Concomitant]
     Active Substance: FOLIC ACID
     Indication: Vitamin supplementation
  4. ATORVASTATIN [Concomitant]
     Active Substance: ATORVASTATIN
     Indication: Product used for unknown indication
  5. GABAPENTIN [Concomitant]
     Active Substance: GABAPENTIN
     Indication: Product used for unknown indication
  6. METHOTREXATE [Concomitant]
     Active Substance: METHOTREXATE
     Indication: Product used for unknown indication

REACTIONS (17)
  - Recurrent cancer [Unknown]
  - Gait inability [Unknown]
  - Device leakage [Not Recovered/Not Resolved]
  - Neuropathy peripheral [Unknown]
  - Injection site discharge [Not Recovered/Not Resolved]
  - Rheumatoid arthritis [Unknown]
  - Memory impairment [Unknown]
  - Pain in extremity [Not Recovered/Not Resolved]
  - Fibromyalgia [Unknown]
  - Nausea [Unknown]
  - Pruritus [Unknown]
  - Vomiting [Unknown]
  - Pain of skin [Unknown]
  - Pain [Not Recovered/Not Resolved]
  - Blister [Unknown]
  - Pain in extremity [Unknown]
  - Hypoacusis [Unknown]

NARRATIVE: CASE EVENT DATE: 20250501
